FAERS Safety Report 11316350 (Version 1)
Quarter: 2015Q3

REPORT INFORMATION
  Report Type: Report from Study
  Country: CA (occurrence: CA)
  Receive Date: 20150728
  Receipt Date: 20150728
  Transmission Date: 20151125
  Serious: Yes (Hospitalization, Other)
  Sender: FDA-Public Use
  Company Number: CA-AMGEN-CANSL2015063351

PATIENT
  Age: 85 Year
  Sex: Female
  Weight: 68.7 kg

DRUGS (12)
  1. PROLIA [Suspect]
     Active Substance: DENOSUMAB
     Dosage: 60 MG, UNK
     Route: 058
     Dates: start: 20141103
  2. VITAMIN D                          /00107901/ [Concomitant]
     Active Substance: ERGOCALCIFEROL
     Dosage: UNK
  3. PERCOCET                           /00446701/ [Concomitant]
     Active Substance: ACETAMINOPHEN\OXYCODONE HYDROCHLORIDE\OXYCODONE TEREPHTHALATE
     Indication: SCIATICA
     Dosage: 5/325, HALF TO ONE TABLET, BID
     Route: 048
     Dates: start: 20150401
  4. PERCOCET                           /00446701/ [Concomitant]
     Active Substance: ACETAMINOPHEN\OXYCODONE HYDROCHLORIDE\OXYCODONE TEREPHTHALATE
     Indication: BACK PAIN
  5. PROLIA [Suspect]
     Active Substance: DENOSUMAB
     Indication: OSTEOPOROSIS POSTMENOPAUSAL
     Dosage: 60 MG, Q6MO
     Route: 058
     Dates: start: 20131021
  6. PROLIA [Suspect]
     Active Substance: DENOSUMAB
     Dosage: 60 MG, UNK
     Route: 058
     Dates: start: 20140421
  7. BISOPROLOL [Concomitant]
     Active Substance: BISOPROLOL
     Dosage: UNK
  8. SYNTHROID [Concomitant]
     Active Substance: LEVOTHYROXINE SODIUM
     Indication: HYPOTHYROIDISM
     Dosage: 0.088 MG, UNK
     Route: 048
  9. PLAVIX [Concomitant]
     Active Substance: CLOPIDOGREL BISULFATE
     Indication: TRANSIENT ISCHAEMIC ATTACK
     Dosage: 75 MG, QD
     Route: 048
     Dates: end: 20150105
  10. DYAZIDE [Concomitant]
     Active Substance: HYDROCHLOROTHIAZIDE\TRIAMTERENE
     Indication: HYPERTENSION
     Dosage: 25/375, HALF TABLET
     Route: 048
  11. VITAMIN B12 [Concomitant]
     Active Substance: CYANOCOBALAMIN
     Dosage: UNK
  12. LIPITOR [Concomitant]
     Active Substance: ATORVASTATIN CALCIUM
     Dosage: 20 MG, UNK
     Route: 048

REACTIONS (11)
  - Fall [Unknown]
  - Ventricular extrasystoles [Unknown]
  - Aortic arteriosclerosis [Unknown]
  - Pulmonary arterial pressure increased [Unknown]
  - Lung hyperinflation [Unknown]
  - Pain [Unknown]
  - Dilatation atrial [Unknown]
  - Living in residential institution [Unknown]
  - Hand fracture [Recovering/Resolving]
  - Mitral valve incompetence [Unknown]
  - Atrial fibrillation [Unknown]

NARRATIVE: CASE EVENT DATE: 20141117
